FAERS Safety Report 8943748 (Version 1)
Quarter: 2012Q4

REPORT INFORMATION
  Report Type: 
  Country: US (occurrence: US)
  Receive Date: 20121203
  Receipt Date: 20121203
  Transmission Date: 20130627
  Serious: Yes (Other)
  Sender: FDA-Public Use
  Company Number: US-GLAXOSMITHKLINE-A1003528A

PATIENT
  Age: 63 Year
  Sex: Male

DRUGS (3)
  1. NICODERM CQ [Suspect]
     Indication: SMOKING CESSATION THERAPY
     Route: 062
     Dates: start: 20121107, end: 20121128
  2. BUPROPION [Suspect]
  3. PERCOCET [Concomitant]

REACTIONS (10)
  - Tremor [Unknown]
  - Muscle spasticity [Unknown]
  - Sleep disorder [Unknown]
  - Muscle twitching [Unknown]
  - Muscle tightness [Unknown]
  - Tremor [Unknown]
  - Nonspecific reaction [Unknown]
  - Muscle rigidity [Unknown]
  - Convulsion [Unknown]
  - Overdose [Unknown]
